FAERS Safety Report 12703487 (Version 2)
Quarter: 2017Q2

REPORT INFORMATION
  Report Type: Spontaneous
  Country: US (occurrence: US)
  Receive Date: 20160831
  Receipt Date: 20170512
  Transmission Date: 20170830
  Serious: Yes (Hospitalization, Other)
  Sender: FDA-Public Use
  Company Number: US-TEVA-689189USA

PATIENT
  Age: 72 Year
  Sex: Male
  Weight: 93.12 kg

DRUGS (10)
  1. SOTALOL. [Concomitant]
     Active Substance: SOTALOL
     Dosage: 80 MILLIGRAM DAILY;
     Route: 048
     Dates: start: 20130507
  2. GLUCOPHAGE XR [Concomitant]
     Active Substance: METFORMIN HYDROCHLORIDE
     Indication: DIABETES MELLITUS
     Dosage: 2000 MILLIGRAM DAILY;
     Route: 048
     Dates: start: 20061221
  3. WARFARIN [Suspect]
     Active Substance: WARFARIN
     Indication: ATRIAL FIBRILLATION
     Dosage: 5 MILLIGRAM DAILY;
     Route: 048
     Dates: start: 20140131
  4. NITROSTAT/GLYCERYL TRINITRATE [Concomitant]
     Indication: CHEST PAIN
     Route: 060
     Dates: start: 20141110
  5. PRAVASTATIN. [Concomitant]
     Active Substance: PRAVASTATIN
     Indication: HYPERLIPIDAEMIA
     Dosage: 40 MILLIGRAM DAILY;
     Route: 048
     Dates: start: 20160418
  6. HYDROCHLOROTHIAZIDE. [Concomitant]
     Active Substance: HYDROCHLOROTHIAZIDE
     Dates: start: 20061221
  7. ZEGERID OTC (OMEPRAZOLE/ SODIUM BICARBONATE) [Concomitant]
     Indication: GASTROOESOPHAGEAL REFLUX DISEASE
     Dosage: 20/1100
     Route: 048
     Dates: start: 20140131
  8. PLACEBO [Concomitant]
     Active Substance: UNSPECIFIED INGREDIENT
     Route: 058
     Dates: start: 20150827
  9. PF-04950615 [Concomitant]
     Active Substance: BOCOCIZUMAB
     Indication: CARDIOVASCULAR DISORDER
     Route: 058
     Dates: start: 20150827
  10. INSULIN ASPART/ PROTAMINE [Concomitant]
     Indication: DIABETES MELLITUS
     Dosage: 36 UNITS EVERY MORNING AND 46 UNITS EVERY EVENING
     Route: 057
     Dates: start: 20141203

REACTIONS (3)
  - Body temperature decreased [Unknown]
  - Haematoma [Recovered/Resolved]
  - Bradycardia [Unknown]

NARRATIVE: CASE EVENT DATE: 20160617
